FAERS Safety Report 7301857-7 (Version None)
Quarter: 2011Q1

REPORT INFORMATION
  Report Type: 
  Country: None (occurrence: None)
  Receive Date: 20110208
  Receipt Date: 20110128
  Transmission Date: 20110831
  Serious: Yes (Death)
  Sender: FDA-Public Use
  Company Number: JP-2011-10167

PATIENT
  Age: 91 Year
  Sex: Female

DRUGS (3)
  1. SAMSCA [Suspect]
     Indication: CARDIAC FAILURE
     Dosage: ORAL
     Route: 048
     Dates: start: 20110105, end: 20110108
  2. DOBUTAMINE HCL [Concomitant]
  3. LASIX [Concomitant]

REACTIONS (1)
  - UPPER RESPIRATORY TRACT INFECTION [None]
